FAERS Safety Report 12119430 (Version 1)
Quarter: 2016Q1

REPORT INFORMATION
  Report Type: Report from Study
  Country: US (occurrence: US)
  Receive Date: 20160226
  Receipt Date: 20160226
  Transmission Date: 20160526
  Serious: Yes (Hospitalization)
  Sender: FDA-Public Use
  Company Number: PHHO2010US16717

PATIENT
  Age: 52 Year
  Sex: Female

DRUGS (2)
  1. FARYDAK [Suspect]
     Active Substance: PANOBINOSTAT
     Indication: INFLAMMATORY CARCINOMA OF THE BREAST
     Dosage: 45 MG, DAYS 1, 3 AND 5
     Route: 048
     Dates: start: 20101014
  2. EPIRUBICIN [Suspect]
     Active Substance: EPIRUBICIN
     Indication: INFLAMMATORY CARCINOMA OF THE BREAST
     Dosage: UNK
     Route: 065
     Dates: start: 20101014

REACTIONS (10)
  - Thrombocytopenia [Recovered/Resolved]
  - Neutropenia [Unknown]
  - Subgaleal haematoma [Recovered/Resolved]
  - Tumour lysis syndrome [Unknown]
  - Fall [Recovered/Resolved]
  - Wound dehiscence [Unknown]
  - Haemorrhage [Unknown]
  - Dizziness [Recovered/Resolved]
  - Anaemia [Unknown]
  - Presyncope [Recovered/Resolved]

NARRATIVE: CASE EVENT DATE: 20101028
